FAERS Safety Report 4459837-5 (Version None)
Quarter: 2004Q3

REPORT INFORMATION
  Report Type: 
  Country: None (occurrence: None)
  Receive Date: 20040927
  Receipt Date: 20040915
  Transmission Date: 20050211
  Serious: Yes (Hospitalization)
  Sender: FDA-Public Use
  Company Number: 2004AL000183

PATIENT
  Sex: Female
  Weight: 54.4316 kg

DRUGS (4)
  1. CLONAZEPAM [Suspect]
     Dosage: 0.5 MG; TID; PO
     Route: 048
     Dates: start: 19960801, end: 20020429
  2. SYNTHROID [Concomitant]
  3. TYLENOL PM [Concomitant]
  4. BENADRYL ^WARNER-LAMBERT^ [Concomitant]

REACTIONS (18)
  - ADNEXA UTERI PAIN [None]
  - AGITATION [None]
  - ANGER [None]
  - DEPENDENCE [None]
  - DEPRESSION [None]
  - DIFFICULTY IN WALKING [None]
  - DYSPHAGIA [None]
  - GALLBLADDER NON-FUNCTIONING [None]
  - GASTROOESOPHAGEAL REFLUX DISEASE [None]
  - INFECTION [None]
  - LETHARGY [None]
  - MUSCULAR WEAKNESS [None]
  - PARKINSONISM [None]
  - PAROSMIA [None]
  - SINUSITIS [None]
  - TONSILLAR DISORDER [None]
  - TREMOR [None]
  - VOMITING [None]
